FAERS Safety Report 23359791 (Version 2)
Quarter: 2024Q1

REPORT INFORMATION
  Report Type: Spontaneous
  Country: US (occurrence: US)
  Receive Date: 20240103
  Receipt Date: 20240104
  Transmission Date: 20240410
  Serious: No
  Sender: FDA-Public Use
  Company Number: US-BRISTOL-MYERS SQUIBB COMPANY-2024-000895

PATIENT
  Age: 72 Year

DRUGS (1)
  1. OPDIVO [Suspect]
     Active Substance: NIVOLUMAB
     Indication: Product used for unknown indication

REACTIONS (4)
  - Limb discomfort [Unknown]
  - Myalgia [Unknown]
  - Arthralgia [Unknown]
  - Gastrointestinal disorder [Unknown]
